FAERS Safety Report 9800912 (Version 2)
Quarter: 2014Q2

REPORT INFORMATION
  Report Type: Spontaneous
  Country: CN (occurrence: CN)
  Receive Date: 20140107
  Receipt Date: 20140527
  Transmission Date: 20141212
  Serious: Yes (Death)
  Sender: FDA-Public Use
  Company Number: CN-JNJFOC-20131218056

PATIENT
  Age: 76 Year
  Sex: Female

DRUGS (5)
  1. DUROGESIC D-TRANS [Suspect]
     Indication: CANCER PAIN
     Dosage: RE-USED HALF PATCH AT INNER SIDE OF THIGH AT NIGHT TIME
     Route: 062
     Dates: start: 20131228
  2. DUROGESIC D-TRANS [Suspect]
     Indication: CANCER PAIN
     Dosage: INCREASED ANOTHER HALF A PTCH AT 07:00 PM
     Route: 062
     Dates: start: 20131227, end: 20131227
  3. DUROGESIC D-TRANS [Suspect]
     Indication: CANCER PAIN
     Dosage: 4.2 MG PATCH = 25 UG/HR PATCH; APPLIED HALF PATCH AT 1:00 PM
     Route: 062
     Dates: start: 20131227, end: 20131227
  4. DUROGESIC D-TRANS [Suspect]
     Indication: CANCER PAIN
     Dosage: APPLIED 1 PATCH ON ABDOMEN AT 09:00 PM
     Route: 062
     Dates: start: 20131227, end: 20131227
  5. PARACETAMOL/TRAMADOL HYDROCHLORIDE [Concomitant]
     Indication: PRODUCT USED FOR UNKNOWN INDICATION
     Dosage: 4.2 MG PATCH = 25 UG/HR PATCH
     Route: 048

REACTIONS (8)
  - Death [Fatal]
  - Drug ineffective [Unknown]
  - Drug administered at inappropriate site [Unknown]
  - Chills [Not Recovered/Not Resolved]
  - Somnolence [Unknown]
  - Drug administration error [Unknown]
  - Wrong technique in drug usage process [Unknown]
  - Inappropriate schedule of drug administration [Unknown]
